FAERS Safety Report 23282633 (Version 1)
Quarter: 2023Q4

REPORT INFORMATION
  Report Type: Spontaneous
  Country: US (occurrence: US)
  Receive Date: 20231211
  Receipt Date: 20231211
  Transmission Date: 20240110
  Serious: Yes (Other)
  Sender: FDA-Public Use
  Company Number: US-009507513-2312USA001821

PATIENT
  Age: 4 Month
  Weight: 2.6 kg

DRUGS (12)
  1. BRIDION [Suspect]
     Active Substance: SUGAMMADEX
     Indication: Neuromuscular blockade reversal
     Dosage: 4 MILLIGRAM/KILOGRAM, ONCE
  2. BRIDION [Suspect]
     Active Substance: SUGAMMADEX
     Dosage: 4 MILLIGRAM/KILOGRAM, ONCE
  3. URSODIOL [Concomitant]
     Active Substance: URSODIOL
     Dosage: 26 MILLIGRAM, TID, ENTERALLY
  4. PROPOFOL [Concomitant]
     Active Substance: PROPOFOL
     Indication: Induction of anaesthesia
     Dosage: 4 MILLIGRAM/KILOGRAM
  5. ROCURONIUM [Concomitant]
     Active Substance: ROCURONIUM BROMIDE
     Indication: Endotracheal intubation
     Dosage: 1.1 MILLIGRAM/KILOGRAM
  6. ROCURONIUM [Concomitant]
     Active Substance: ROCURONIUM BROMIDE
     Dosage: 38 MINUTES AFTER ANESTHETIC INDUCTION, 2 MG
  7. ROCURONIUM [Concomitant]
     Active Substance: ROCURONIUM BROMIDE
     Dosage: 78 MINUTES AFTER ANESTHETIC INDUCTION, 5 MG
  8. ROCURONIUM [Concomitant]
     Active Substance: ROCURONIUM BROMIDE
     Dosage: 128 MINUTES AFTER ANESTHETIC INDUCTION, 2 MG
  9. ROCURONIUM [Concomitant]
     Active Substance: ROCURONIUM BROMIDE
     Dosage: 147 MINUTES AFTER ANESTHETIC INDUCTION, 2 MG
  10. CHLOROPROCAINE [Concomitant]
     Active Substance: CHLOROPROCAINE
     Indication: Anaesthesia
  11. CLONIDINE [Concomitant]
     Active Substance: CLONIDINE
     Indication: Anaesthesia
  12. SEVOFLURANE [Concomitant]
     Active Substance: SEVOFLURANE
     Indication: Maintenance of anaesthesia
     Dosage: 0.3% - 2.7%

REACTIONS (2)
  - Recurrence of neuromuscular blockade [Recovered/Resolved]
  - Product administered to patient of inappropriate age [Unknown]
